FAERS Safety Report 9301293 (Version 1)
Quarter: 2013Q2

REPORT INFORMATION
  Report Type: Report from Study
  Country: US (occurrence: US)
  Receive Date: 20130521
  Receipt Date: 20130521
  Transmission Date: 20140414
  Serious: Yes (Life-Threatening, Hospitalization)
  Sender: FDA-Public Use
  Company Number: US-ASTRAZENECA-2013SE35042

PATIENT
  Age: 26573 Day
  Sex: Male
  Weight: 98.9 kg

DRUGS (9)
  1. ATACAND HCT [Suspect]
     Indication: HYPERTENSION
     Dosage: 16 + 12.5 MG DAILY
     Route: 048
     Dates: start: 20070223
  2. CADUET [Suspect]
     Indication: HYPERTENSION
     Dosage: 10+40 MG DAILY
     Route: 048
     Dates: start: 20070223
  3. CADUET [Suspect]
     Indication: HYPERLIPIDAEMIA
     Dosage: 10+40 MG DAILY
     Route: 048
     Dates: start: 20070223
  4. GEMFIBROZIL [Concomitant]
  5. ATENOLOL [Concomitant]
     Dates: end: 20120219
  6. CILOSTAZOL [Concomitant]
     Dates: end: 20120219
  7. ALLOPURINOL [Concomitant]
  8. ASA [Concomitant]
  9. JANUVIA [Concomitant]

REACTIONS (1)
  - Renal failure acute [Recovered/Resolved]
